FAERS Safety Report 6081363-0 (Version None)
Quarter: 2009Q1

REPORT INFORMATION
  Report Type: 
  Country: None (occurrence: None)
  Receive Date: 20090218
  Receipt Date: 20090202
  Transmission Date: 20090719
  Serious: Yes (Other)
  Sender: FDA-Public Use
  Company Number: CH-JNJFOC-20090106618

PATIENT
  Age: 68 Year
  Sex: Male

DRUGS (1)
  1. DURAGESIC-100 [Suspect]
     Indication: TUMOUR PAIN
     Route: 062

REACTIONS (1)
  - DEPRESSED LEVEL OF CONSCIOUSNESS [None]
